FAERS Safety Report 4440373-7 (Version None)
Quarter: 2004Q3

REPORT INFORMATION
  Report Type: 
  Country: None (occurrence: None)
  Receive Date: 20040901
  Receipt Date: 20040901
  Transmission Date: 20050211
  Serious: No
  Sender: FDA-Public Use
  Company Number: None

PATIENT
  Age: 54 Year
  Sex: Male

DRUGS (1)
  1. VALPROIC ACID [Suspect]
     Dosage: 1000 MG QD ORAL
     Route: 048

REACTIONS (1)
  - PLATELET COUNT DECREASED [None]
